FAERS Safety Report 8766830 (Version 1)
Quarter: 2012Q4

REPORT INFORMATION
  Report Type: 
  Country: US (occurrence: US)
  Receive Date: 20120903
  Receipt Date: 20120903
  Transmission Date: 20130627
  Serious: Yes (Other)
  Sender: FDA-Public Use
  Company Number: US-BAYER-2012-088492

PATIENT
  Age: 19 Year
  Sex: Female

DRUGS (10)
  1. YAZ [Suspect]
  2. IBUPROFEN [Concomitant]
     Dosage: 800 mg, UNK
  3. LEVAQUIN [Concomitant]
     Dosage: 750 mg, UNK
  4. ONDANSETRON [Concomitant]
     Dosage: 4 mg, UNK
  5. HYDROCODONE W/ACETAMINOPHEN [Concomitant]
     Dosage: 5-500
  6. ADVAIR DISKUS [Concomitant]
     Dosage: 250-50
  7. PRO-AIR [Concomitant]
     Dosage: 90 mcg
  8. LEXAPRO [Concomitant]
     Dosage: 10 mg, UNK
  9. LORAZEPAM [Concomitant]
     Dosage: 0.5 mg, UNK
  10. JOLESSA [Concomitant]

REACTIONS (1)
  - Vena cava thrombosis [None]
